FAERS Safety Report 9973790 (Version 2)
Quarter: 2014Q1

REPORT INFORMATION
  Report Type: Spontaneous
  Country: US (occurrence: US)
  Receive Date: 20140306
  Receipt Date: 20140306
  Transmission Date: 20141002
  Serious: No
  Sender: FDA-Public Use
  Company Number: US-GILEAD-2012-0061966

PATIENT
  Age: 38 Year
  Sex: Male
  Weight: 77.98 kg

DRUGS (1)
  1. VIREAD [Suspect]
     Indication: CHRONIC HEPATITIS B
     Dosage: 300 MG, QD
     Route: 048
     Dates: start: 20090128, end: 20120920

REACTIONS (1)
  - Hypoaesthesia [Not Recovered/Not Resolved]
